FAERS Safety Report 4308197-9 (Version None)
Quarter: 2004Q1

REPORT INFORMATION
  Report Type: 
  Country: None (occurrence: None)
  Receive Date: 20040301
  Receipt Date: 20030813
  Transmission Date: 20041129
  Serious: No
  Sender: FDA-Public Use
  Company Number: US-BRISTOL-MYERS SQUIBB COMPANY-12355558

PATIENT
  Age: 71 Year
  Sex: Female
  Weight: 111 kg

DRUGS (8)
  1. GLUCOPHAGE [Suspect]
     Indication: DIABETES MELLITUS NON-INSULIN-DEPENDENT
     Route: 048
     Dates: end: 20030805
  2. GLIPIZIDE [Concomitant]
  3. COZAAR [Concomitant]
  4. TEMAZEPAM [Concomitant]
  5. LOPID [Concomitant]
  6. AMITRIPTYLINE HCL [Concomitant]
  7. SOMA [Concomitant]
  8. DARVOCET [Concomitant]

REACTIONS (2)
  - FATIGUE [None]
  - PCO2 DECREASED [None]
